FAERS Safety Report 7293522-X (Version None)
Quarter: 2011Q1

REPORT INFORMATION
  Report Type: 
  Country: None (occurrence: None)
  Receive Date: 20110215
  Receipt Date: 20110203
  Transmission Date: 20110831
  Serious: Yes (Death, Life-Threatening, Hospitalization, Other)
  Sender: FDA-Public Use
  Company Number: FR-MERCK-1008FRA00062

PATIENT
  Age: 53 Year
  Sex: Male

DRUGS (11)
  1. ISENTRESS [Suspect]
     Indication: HIV INFECTION
     Route: 048
     Dates: start: 20100129, end: 20100304
  2. SILDENAFIL CITRATE [Suspect]
     Indication: PULMONARY HYPERTENSION
     Route: 065
     Dates: start: 20090701
  3. FOSAMPRENAVIR CALCIUM [Suspect]
     Indication: HIV INFECTION
     Route: 048
     Dates: start: 20040101
  4. GLYBURIDE AND METFORMIN HYDROCHLORIDE [Suspect]
     Indication: TYPE 2 DIABETES MELLITUS
     Route: 048
     Dates: start: 20050101
  5. VENLAFAXINE HYDROCHLORIDE [Concomitant]
     Indication: DEPRESSION
     Route: 048
     Dates: start: 20050101
  6. ACEPROMETAZINE MALEATE AND MEPROBAMATE [Concomitant]
     Indication: DEPRESSION
     Route: 048
     Dates: start: 20050101
  7. ALPRAZOLAM [Concomitant]
     Indication: DEPRESSION
     Route: 048
     Dates: start: 20050101
  8. DIDANOSINE [Suspect]
     Route: 048
  9. EFAVIRENZ [Suspect]
     Indication: HIV INFECTION
     Route: 048
     Dates: start: 20040101
  10. RISPERIDONE [Concomitant]
     Indication: DEPRESSION
     Route: 048
     Dates: start: 20050101
  11. RITONAVIR [Suspect]
     Indication: HIV INFECTION
     Route: 048
     Dates: start: 20040101

REACTIONS (7)
  - DYSPNOEA [None]
  - HEPATIC FAILURE [None]
  - VENTRICULAR ARRHYTHMIA [None]
  - HYPERLACTACIDAEMIA [None]
  - INSOMNIA [None]
  - METABOLIC ACIDOSIS [None]
  - SHOCK [None]
